FAERS Safety Report 10190493 (Version 1)
Quarter: 2014Q2

REPORT INFORMATION
  Report Type: Spontaneous
  Country: US (occurrence: US)
  Receive Date: 20140522
  Receipt Date: 20140522
  Transmission Date: 20141212
  Serious: No
  Sender: FDA-Public Use
  Company Number: US-SA-2013SA116724

PATIENT
  Sex: 0

DRUGS (1)
  1. ELOXATIN [Suspect]
     Route: 065

REACTIONS (2)
  - Neuropathy peripheral [Unknown]
  - Bronchospasm [Unknown]
